FAERS Safety Report 8854384 (Version 1)
Quarter: 2012Q4

REPORT INFORMATION
  Report Type: Report from Study
  Country: IT (occurrence: IT)
  Receive Date: 20121023
  Receipt Date: 20121023
  Transmission Date: 20130627
  Serious: Yes (Hospitalization)
  Sender: FDA-Public Use
  Company Number: IT-ROCHE-1148087

PATIENT
  Age: 89 Year
  Sex: Male
  Weight: 68 kg

DRUGS (7)
  1. VEMURAFENIB [Suspect]
     Indication: MALIGNANT MELANOMA
     Route: 048
     Dates: start: 20120521, end: 20120526
  2. VEMURAFENIB [Suspect]
     Route: 048
     Dates: start: 20120607, end: 20120813
  3. COUMADIN [Concomitant]
     Indication: ATRIAL FIBRILLATION
     Route: 048
  4. ISOPTIN [Concomitant]
     Indication: HYPERTENSION
     Route: 048
  5. PANTORC [Concomitant]
     Indication: PROPHYLAXIS AGAINST GASTROINTESTINAL ULCER
     Route: 048
  6. PAROXETINE [Concomitant]
     Indication: DEPRESSION
     Route: 048
  7. FUROSEMIDE [Concomitant]
     Indication: HYPERTENSION
     Route: 048

REACTIONS (1)
  - Transient ischaemic attack [Recovered/Resolved]
